FAERS Safety Report 4863258-0 (Version None)
Quarter: 2005Q4

REPORT INFORMATION
  Report Type: 
  Country: None (occurrence: None)
  Receive Date: 20051219
  Receipt Date: 20051208
  Transmission Date: 20060501
  Serious: Yes (Other)
  Sender: FDA-Public Use
  Company Number: 2005165883

PATIENT
  Age: 23 Year
  Sex: Female
  Weight: 77.1115 kg

DRUGS (1)
  1. UNISOM [Suspect]
     Dosage: 6 SLEEPGELS ONCE ORAL
     Route: 048
     Dates: start: 20051208, end: 20051208

REACTIONS (6)
  - ASTHENIA [None]
  - CHEST PAIN [None]
  - DIZZINESS [None]
  - DYSARTHRIA [None]
  - OVERDOSE [None]
  - SOMNOLENCE [None]
